FAERS Safety Report 7639463 (Version 5)
Quarter: 2012Q4

REPORT INFORMATION
  Report Type: 
  Country: JP (occurrence: JP)
  Receive Date: 20101025
  Receipt Date: 20121126
  Transmission Date: 20130627
  Serious: Yes (Life-Threatening, Hospitalization)
  Sender: FDA-Public Use
  Company Number: JP-ASTRAZENECA-2010SE49996

PATIENT
  Age: 36 Year
  Sex: Male

DRUGS (3)
  1. SEROQUEL [Suspect]
     Indication: SCHIZOPHRENIA
     Route: 048
     Dates: start: 20100702, end: 20100702
  2. DEPAKENE [Interacting]
     Route: 048
     Dates: start: 20100702, end: 20100702
  3. HIBERNA [Interacting]
     Route: 048
     Dates: start: 20100702, end: 20100702

REACTIONS (3)
  - Drug interaction [Unknown]
  - Intentional overdose [Recovering/Resolving]
  - Coma [Recovering/Resolving]
